FAERS Safety Report 9168273 (Version 1)
Quarter: 2013Q1

REPORT INFORMATION
  Report Type: Spontaneous
  Country: US (occurrence: US)
  Receive Date: 20130318
  Receipt Date: 20130318
  Transmission Date: 20140127
  Serious: Yes (Hospitalization)
  Sender: FDA-Public Use
  Company Number: PHEH2013US003045

PATIENT
  Age: 69 Year
  Sex: Female

DRUGS (2)
  1. GILENYA [Suspect]
     Indication: MULTIPLE SCLEROSIS
     Dosage: 0.5 MG, QD
     Route: 048
     Dates: start: 20120924
  2. PHYSICAL THERAPY [Concomitant]

REACTIONS (6)
  - Swelling [Unknown]
  - Multiple sclerosis relapse [Unknown]
  - Dysphagia [Unknown]
  - Pain in extremity [Unknown]
  - Urinary tract infection [Unknown]
  - Cystitis [Unknown]
